FAERS Safety Report 15261406 (Version 1)
Quarter: 2018Q3

REPORT INFORMATION
  Report Type: Spontaneous
  Country: US (occurrence: US)
  Receive Date: 20180719
  Receipt Date: 20180719
  Transmission Date: 20181010
  Serious: Yes (Disabling)
  Sender: FDA-Public Use
  Company Number: None

PATIENT
  Age: 32 Year
  Sex: Female
  Weight: 78.75 kg

DRUGS (1)
  1. LEVETIRACETAM. [Suspect]
     Active Substance: LEVETIRACETAM
     Indication: EPILEPSY
     Dates: start: 20150701, end: 20180719

REACTIONS (5)
  - Anger [None]
  - Irritability [None]
  - Major depression [None]
  - Personality disorder [None]
  - Anhedonia [None]

NARRATIVE: CASE EVENT DATE: 20160701
